FAERS Safety Report 15292409 (Version 1)
Quarter: 2018Q3

REPORT INFORMATION
  Report Type: Spontaneous
  Country: US (occurrence: US)
  Receive Date: 20180806
  Receipt Date: 20180806
  Transmission Date: 20181010
  Serious: No
  Sender: FDA-Public Use
  Company Number: None

PATIENT
  Age: 30 Year
  Sex: Female
  Weight: 83.91 kg

DRUGS (1)
  1. MIRENA [Suspect]
     Active Substance: LEVONORGESTREL

REACTIONS (10)
  - Visual acuity reduced [None]
  - Depressed mood [None]
  - Fatigue [None]
  - Weight increased [None]
  - Intervertebral disc annular tear [None]
  - Headache [None]
  - Muscle spasms [None]
  - Vaginal haemorrhage [None]
  - Vitamin D decreased [None]
  - Libido decreased [None]

NARRATIVE: CASE EVENT DATE: 20171001
